FAERS Safety Report 9925847 (Version 1)
Quarter: 2014Q1

REPORT INFORMATION
  Report Type: Spontaneous
  Country: FI (occurrence: FI)
  Receive Date: 20140226
  Receipt Date: 20140226
  Transmission Date: 20141002
  Serious: Yes (Disabling)
  Sender: FDA-Public Use
  Company Number: FI-TEVA-464550ISR

PATIENT
  Age: 71 Year
  Sex: Female

DRUGS (6)
  1. AZILECT [Suspect]
     Indication: PARKINSON^S DISEASE
     Dosage: 1 MILLIGRAM DAILY;
     Route: 048
     Dates: start: 20131118, end: 20140214
  2. METOPROLIN 50MG [Concomitant]
     Indication: HYPERTENSION
     Route: 048
  3. PRIMASPAN 100MG [Concomitant]
     Indication: THROMBOSIS PROPHYLAXIS
     Route: 048
  4. SINEMET 25/100MG [Concomitant]
     Indication: PARKINSON^S DISEASE
     Route: 048
     Dates: start: 2000
  5. NEUPRO 8MG/24H [Concomitant]
     Indication: PARKINSON^S DISEASE
     Route: 061
     Dates: start: 20100707
  6. PROLIA/DENOSUMABE 60MG/ML [Concomitant]
     Indication: OSTEOPOROSIS
     Route: 058
     Dates: start: 20130904

REACTIONS (4)
  - Vascular occlusion [Recovered/Resolved with Sequelae]
  - Blindness unilateral [Recovered/Resolved with Sequelae]
  - Arterial wall hypertrophy [Unknown]
  - Blood cholesterol increased [Unknown]
